FAERS Safety Report 9802742 (Version 2)
Quarter: 2014Q1

REPORT INFORMATION
  Report Type: Spontaneous
  Country: TW (occurrence: TW)
  Receive Date: 20140108
  Receipt Date: 20140108
  Transmission Date: 20141002
  Serious: Yes (Death, Hospitalization, Other)
  Sender: FDA-Public Use
  Company Number: TW-AMGEN-TWNSP2013091025

PATIENT
  Age: 76 Year
  Sex: Female

DRUGS (1)
  1. ENBREL [Suspect]
     Indication: RHEUMATOID ARTHRITIS
     Dosage: 25 MG, EVERY 5 DAYS
     Route: 058
     Dates: start: 20120604, end: 20131102

REACTIONS (59)
  - Peptic ulcer [Unknown]
  - Abdominal distension [Unknown]
  - Decreased appetite [Unknown]
  - Nausea [Unknown]
  - Vomiting [Unknown]
  - Constipation [Unknown]
  - Abdominal tenderness [Unknown]
  - Urine output decreased [Unknown]
  - Ileus paralytic [Unknown]
  - Compression fracture [Unknown]
  - Biliary dilatation [Unknown]
  - Ascites [Unknown]
  - Gastrointestinal oedema [Unknown]
  - Small intestinal obstruction [Unknown]
  - Abdominal pain [Unknown]
  - Lower respiratory tract inflammation [Unknown]
  - Haemoglobin decreased [Unknown]
  - White blood cell count decreased [Unknown]
  - Red blood cell count decreased [Unknown]
  - Haematocrit decreased [Unknown]
  - Mean cell volume abnormal [Unknown]
  - Mean cell haemoglobin increased [Unknown]
  - Band neutrophil percentage increased [Unknown]
  - Lymphocyte count abnormal [Unknown]
  - Blood calcium abnormal [Unknown]
  - Blood lactic acid abnormal [Unknown]
  - Blood albumin abnormal [Unknown]
  - C-reactive protein decreased [Unknown]
  - Blood creatine phosphokinase abnormal [Unknown]
  - Blood potassium abnormal [Unknown]
  - Blood creatine phosphokinase MB abnormal [Unknown]
  - Troponin I increased [Unknown]
  - Metabolic acidosis [Unknown]
  - Blood fibrinogen abnormal [Unknown]
  - Fibrin D dimer increased [Unknown]
  - Oxygen consumption decreased [Unknown]
  - Blood glucose abnormal [Unknown]
  - Amylase abnormal [Unknown]
  - Fall [Unknown]
  - Pyrexia [Unknown]
  - Coagulopathy [Unknown]
  - Hypotension [Unknown]
  - Bradycardia [Unknown]
  - Bladder dilatation [Unknown]
  - Hepatic cyst [Unknown]
  - Dystrophic calcification [Unknown]
  - Aortic arteriosclerosis [Unknown]
  - Spinal osteoarthritis [Unknown]
  - Lung disorder [Unknown]
  - Cardiomegaly [Unknown]
  - Cholelithiasis [Unknown]
  - Osteoporosis [Unknown]
  - Hypertension [Unknown]
  - Pyelonephritis [Unknown]
  - Superinfection [Unknown]
  - Lung infection [Unknown]
  - Alanine aminotransferase increased [Unknown]
  - Aspartate aminotransferase increased [Unknown]
  - Septic shock [Fatal]
